FAERS Safety Report 5062096-6 (Version None)
Quarter: 2006Q3

REPORT INFORMATION
  Report Type: 
  Country: None (occurrence: None)
  Receive Date: 20060721
  Receipt Date: 20060707
  Transmission Date: 20061208
  Serious: Yes (Other)
  Sender: FDA-Public Use
  Company Number: 2006005827

PATIENT

DRUGS (1)
  1. PREDNISONE TAB [Suspect]
     Indication: LUNG DISORDER

REACTIONS (2)
  - ERECTILE DYSFUNCTION [None]
  - OVERDOSE [None]
